FAERS Safety Report 10272722 (Version 1)
Quarter: 2014Q2

REPORT INFORMATION
  Report Type: Spontaneous
  Country: US (occurrence: None)
  Receive Date: 20140627
  Receipt Date: 20140627
  Transmission Date: 20141212
  Serious: Yes (Life-Threatening)
  Sender: FDA-Public Use
  Company Number: None

PATIENT
  Age: 45 Year
  Sex: Female

DRUGS (3)
  1. AMLODIPINE [Suspect]
     Indication: GASTROINTESTINAL PAIN
     Dosage: 1, ORAL, QD
     Route: 048
     Dates: start: 20140610, end: 20140623
  2. LANSOPRAZOLE [Concomitant]
  3. GI COCKTAIL (DONNATAL ELIXER, MAALOX, LIDOCAINE ORAL) [Concomitant]

REACTIONS (5)
  - Psychotic disorder [None]
  - Energy increased [None]
  - Poor quality sleep [None]
  - Aggression [None]
  - Agitation [None]
